FAERS Safety Report 13510004 (Version 2)
Quarter: 2017Q3

REPORT INFORMATION
  Report Type: Spontaneous
  Country: US (occurrence: US)
  Receive Date: 20170503
  Receipt Date: 20170803
  Transmission Date: 20171127
  Serious: No
  Sender: FDA-Public Use
  Company Number: US-SA-2017SA061927

PATIENT
  Age: 87 Year
  Sex: Female

DRUGS (8)
  1. ALIROCUMAB PREFILLED PEN [Concomitant]
     Active Substance: ALIROCUMAB
     Indication: HYPERLIPIDAEMIA
     Dates: start: 20170113
  2. CILOSTAZOL. [Concomitant]
     Active Substance: CILOSTAZOL
     Indication: ANTICOAGULANT THERAPY
     Dates: start: 20150401
  3. PRALUENT [Suspect]
     Active Substance: ALIROCUMAB
     Indication: HYPERLIPIDAEMIA
     Route: 058
     Dates: start: 20170113
  4. DULERA [Concomitant]
     Active Substance: FORMOTEROL FUMARATE DIHYDRATE\MOMETASONE FUROATE
     Indication: ASTHMA
  5. PREMARIN [Concomitant]
     Active Substance: ESTROGENS, CONJUGATED
  6. REPATHA [Concomitant]
     Active Substance: EVOLOCUMAB
     Dates: start: 2016
  7. BISOPROLOL/HYDROCHLOROTHIAZIDE [Concomitant]
  8. METFORMIN [Concomitant]
     Active Substance: METFORMIN HYDROCHLORIDE
     Indication: DIABETES MELLITUS

REACTIONS (6)
  - Injection site bruising [Recovered/Resolved]
  - Injection site erythema [Unknown]
  - Injection site reaction [Not Recovered/Not Resolved]
  - Injection site swelling [Recovered/Resolved]
  - Back pain [Unknown]
  - Injection site pain [Unknown]

NARRATIVE: CASE EVENT DATE: 20170315
